FAERS Safety Report 9117979 (Version 3)
Quarter: 2013Q2

REPORT INFORMATION
  Report Type: Spontaneous
  Country: US (occurrence: US)
  Receive Date: 20130208
  Receipt Date: 20130409
  Transmission Date: 20140414
  Serious: Yes (Hospitalization, Other)
  Sender: FDA-Public Use
  Company Number: US-ELI_LILLY_AND_COMPANY-US201301010485

PATIENT
  Age: 81 Year
  Sex: Female
  Weight: 111.11 kg

DRUGS (16)
  1. HUMULIN NPH [Suspect]
     Indication: TYPE 2 DIABETES MELLITUS
     Dosage: 55 U, EACH MORNING
     Dates: start: 1992, end: 2012
  2. HUMULIN NPH [Suspect]
     Dosage: 40 U, EACH EVENING
  3. HUMULIN REGULAR [Suspect]
     Indication: TYPE 2 DIABETES MELLITUS
     Dosage: 40 U, BID
  4. NOVOLIN N [Concomitant]
     Indication: TYPE 2 DIABETES MELLITUS
  5. METFORMIN [Concomitant]
     Dosage: 1000 MG, BID
  6. SYNTHROID [Concomitant]
     Dosage: .05 MG, QD
  7. LISINOPRIL HCT                     /01613901/ [Concomitant]
     Dosage: UNK, QD
  8. ZANTAC [Concomitant]
  9. NORVASC [Concomitant]
     Dosage: 5 MG, QD
  10. CALCIUM [Concomitant]
  11. BABY ASPIRIN [Concomitant]
     Dosage: 81 MG, QD
  12. CLONIDINE [Concomitant]
     Dosage: 0.1 MG, BID
  13. LASIX [Concomitant]
     Dosage: 20 MG, QOD
  14. DILTIAZEM [Concomitant]
     Dosage: 240 MG, QD
  15. LISINOPRIL [Concomitant]
     Dosage: 20 MG, QD
  16. PLAVIX [Concomitant]
     Dosage: 75 MG, QD

REACTIONS (7)
  - Cerebrovascular accident [Unknown]
  - Blood glucose increased [Recovered/Resolved]
  - Blood glucose decreased [Recovered/Resolved]
  - Hypoaesthesia [Not Recovered/Not Resolved]
  - Confusional state [Recovered/Resolved]
  - Hypertension [Unknown]
  - Hyperlipidaemia [Unknown]
